FAERS Safety Report 14636170 (Version 1)
Quarter: 2018Q1

REPORT INFORMATION
  Report Type: Not Available
  Country: US (occurrence: US)
  Receive Date: 20180314
  Receipt Date: 20180314
  Transmission Date: 20180509
  Serious: No
  Sender: FDA-Public Use
  Company Number: US-FOUNDATIONCONSUMERHC-2018-US-001001

PATIENT
  Age: 19 Year
  Sex: Female
  Weight: 54.43 kg

DRUGS (2)
  1. UNSPECIFIED ^BIRTH CONTROL^ [Concomitant]
  2. PLAN B ONE-STEP [Suspect]
     Active Substance: LEVONORGESTREL
     Dosage: 1.5 MG TABLET X 1 DOSE
     Route: 048
     Dates: start: 20171225, end: 20171225

REACTIONS (3)
  - Abdominal pain upper [Recovered/Resolved]
  - Abdominal distension [Unknown]
  - Breast pain [Unknown]

NARRATIVE: CASE EVENT DATE: 20171226
